FAERS Safety Report 22631637 (Version 1)
Quarter: 2023Q2

REPORT INFORMATION
  Report Type: Spontaneous
  Country: US (occurrence: US)
  Receive Date: 20230623
  Receipt Date: 20230623
  Transmission Date: 20230721
  Serious: Yes (Death, Other)
  Sender: FDA-Public Use
  Company Number: US-TOLMAR, INC.-23US041559

PATIENT
  Age: 67 Year
  Sex: Male

DRUGS (8)
  1. ELIGARD [Suspect]
     Active Substance: LEUPROLIDE ACETATE
     Indication: Hormone-refractory prostate cancer
     Dosage: UNK UNK, Q 6 MONTH
  2. ELIGARD [Suspect]
     Active Substance: LEUPROLIDE ACETATE
     Indication: Hormone-refractory prostate cancer
     Dosage: UNK
  3. BICALUTAMIDE [Suspect]
     Active Substance: BICALUTAMIDE
     Indication: Hormone-refractory prostate cancer
     Dosage: UNK
  4. ENZALUTAMIDE [Suspect]
     Active Substance: ENZALUTAMIDE
     Indication: Hormone-refractory prostate cancer
     Dosage: UNK
  5. SIPULEUCEL-T [Suspect]
     Active Substance: SIPULEUCEL-T
     Indication: Hormone-refractory prostate cancer
     Dosage: Q 6 WEEKS
  6. OLAPARIB [Suspect]
     Active Substance: OLAPARIB
     Indication: Hormone-refractory prostate cancer
     Dosage: 300 MILLIGRAM, BID
     Dates: end: 201912
  7. UNSPECIFIED INGREDIENT [Suspect]
     Active Substance: UNSPECIFIED INGREDIENT
     Indication: Hormone-refractory prostate cancer
     Dosage: 200 MILLIGRAM, Q 3 WEEK
     Route: 042
     Dates: end: 201912
  8. DURVALUMAB [Suspect]
     Active Substance: DURVALUMAB
     Indication: Hormone-refractory prostate cancer
     Dosage: UNK

REACTIONS (4)
  - Death [Fatal]
  - Waldenstrom^s macroglobulinaemia [Recovered/Resolved]
  - Aplasia pure red cell [Recovered/Resolved]
  - Malignant neoplasm progression [Unknown]
